FAERS Safety Report 9708494 (Version 1)
Quarter: 2013Q4

REPORT INFORMATION
  Report Type: Spontaneous
  Country: US (occurrence: None)
  Receive Date: 20131121
  Receipt Date: 20131121
  Transmission Date: 20140711
  Serious: Yes (Life-Threatening, Hospitalization)
  Sender: FDA-Public Use
  Company Number: IPC201311-000471

PATIENT
  Age: 44 Year
  Sex: Female

DRUGS (1)
  1. CHLOROQUINE PHOSPHATE [Suspect]
     Dosage: 250 MG, 20 PILLS ONCE

REACTIONS (9)
  - Overdose [None]
  - Cinchonism [None]
  - Abdominal pain [None]
  - Vomiting [None]
  - Intentional self-injury [None]
  - Hypotension [None]
  - Blood potassium decreased [None]
  - Electrocardiogram QRS complex prolonged [None]
  - Electrocardiogram QT prolonged [None]
